FAERS Safety Report 8394519-9 (Version None)
Quarter: 2012Q2

REPORT INFORMATION
  Report Type: 
  Country: None (occurrence: None)
  Receive Date: 20120530
  Receipt Date: 20120517
  Transmission Date: 20120825
  Serious: Yes (Hospitalization, Other)
  Sender: FDA-Public Use
  Company Number: US-ELI_LILLY_AND_COMPANY-US201205006822

PATIENT
  Sex: Female
  Weight: 41 kg

DRUGS (6)
  1. OMEPRAZOLE [Concomitant]
  2. DIOVAN [Concomitant]
  3. FORTEO [Suspect]
     Indication: OSTEOPOROSIS
     Dosage: 20 UG, QD
     Route: 065
     Dates: end: 20120101
  4. CLONIDINE [Concomitant]
  5. METOPROLOL TARTRATE [Concomitant]
  6. ASPIRIN [Concomitant]
     Indication: ANTICOAGULANT THERAPY

REACTIONS (11)
  - GASTRIC HAEMORRHAGE [None]
  - BACK DISORDER [None]
  - EATING DISORDER [None]
  - DIZZINESS [None]
  - DIVERTICULITIS [None]
  - MALAISE [None]
  - ADVERSE DRUG REACTION [None]
  - UPPER LIMB FRACTURE [None]
  - BACK PAIN [None]
  - GASTRIC DISORDER [None]
  - MUSCULOSKELETAL PAIN [None]
